FAERS Safety Report 25807022 (Version 1)
Quarter: 2025Q3

REPORT INFORMATION
  Report Type: Spontaneous
  Country: US (occurrence: None)
  Receive Date: 20250915
  Receipt Date: 20250915
  Transmission Date: 20251021
  Serious: Yes (Other)
  Sender: FDA-CTU
  Company Number: None

PATIENT
  Age: 41 Year
  Sex: Male
  Weight: 107.55 kg

DRUGS (3)
  1. LISINOPRIL [Suspect]
     Active Substance: LISINOPRIL
     Indication: Hypertension
     Dosage: FREQUENCY : DAILY;?
     Route: 048
     Dates: start: 20221025, end: 20250602
  2. Metformin XR 500 mg, 1 tablet BID [Concomitant]
     Dates: start: 20250602
  3. Hydrochlorothiazide 50 mg tablet daily [Concomitant]
     Dates: start: 20250602

REACTIONS (1)
  - Angioedema [None]

NARRATIVE: CASE EVENT DATE: 20250602
